FAERS Safety Report 4344934-5 (Version None)
Quarter: 2004Q2

REPORT INFORMATION
  Report Type: 
  Country: None (occurrence: None)
  Receive Date: 20040420
  Receipt Date: 20040407
  Transmission Date: 20050107
  Serious: No
  Sender: FDA-Public Use
  Company Number: 04P-028-0256478-00

PATIENT

DRUGS (9)
  1. SEVOFLURANE [Suspect]
     Indication: ANAESTHESIA
     Dosage: TITRATED, INHALATION
     Route: 055
  2. DIAZEPAM [Concomitant]
  3. MORPHINE [Concomitant]
  4. MIDAZOLAM HCL [Concomitant]
  5. FENTANYL [Concomitant]
  6. OXYGEN [Concomitant]
  7. BETA-ADRENERGIC BLOCKING AGENTS [Concomitant]
  8. CALCIUM CHANNEL BLOCKERS [Concomitant]
  9. NITRATES [Concomitant]

REACTIONS (1)
  - HAEMODYNAMIC INSTABILITY [None]
